FAERS Safety Report 25611586 (Version 1)
Quarter: 2025Q3

REPORT INFORMATION
  Report Type: Spontaneous
  Country: CA (occurrence: CA)
  Receive Date: 20250728
  Receipt Date: 20250728
  Transmission Date: 20251021
  Serious: Yes (Hospitalization)
  Sender: MYLAN
  Company Number: CA-MYLANLABS-2025M1061801

PATIENT
  Age: 39 Year
  Sex: Female
  Weight: 84 kg

DRUGS (26)
  1. LYRICA [Suspect]
     Active Substance: PREGABALIN
     Indication: Product used for unknown indication
  2. LYRICA [Suspect]
     Active Substance: PREGABALIN
     Indication: Product used for unknown indication
  3. CYMBALTA [Suspect]
     Active Substance: DULOXETINE HYDROCHLORIDE
     Indication: Product used for unknown indication
  4. CYMBALTA [Suspect]
     Active Substance: DULOXETINE HYDROCHLORIDE
  5. OMALIZUMAB [Suspect]
     Active Substance: OMALIZUMAB
     Indication: Chronic spontaneous urticaria
     Dosage: 150 MILLIGRAM, MONTHLY (1 EVERY 1 MONTH)
  6. OMALIZUMAB [Suspect]
     Active Substance: OMALIZUMAB
  7. OMALIZUMAB [Suspect]
     Active Substance: OMALIZUMAB
  8. OMALIZUMAB [Suspect]
     Active Substance: OMALIZUMAB
  9. OMALIZUMAB [Suspect]
     Active Substance: OMALIZUMAB
  10. OMALIZUMAB [Suspect]
     Active Substance: OMALIZUMAB
  11. OMALIZUMAB [Suspect]
     Active Substance: OMALIZUMAB
  12. OMALIZUMAB [Suspect]
     Active Substance: OMALIZUMAB
  13. OMALIZUMAB [Suspect]
     Active Substance: OMALIZUMAB
  14. OMALIZUMAB [Suspect]
     Active Substance: OMALIZUMAB
  15. OMALIZUMAB [Suspect]
     Active Substance: OMALIZUMAB
  16. OMALIZUMAB [Suspect]
     Active Substance: OMALIZUMAB
  17. OMALIZUMAB [Suspect]
     Active Substance: OMALIZUMAB
  18. OMALIZUMAB [Suspect]
     Active Substance: OMALIZUMAB
  19. OMALIZUMAB [Suspect]
     Active Substance: OMALIZUMAB
  20. FLOVENT [Concomitant]
     Active Substance: FLUTICASONE PROPIONATE
     Indication: Product used for unknown indication
  21. OMEPRAZOLE [Concomitant]
     Active Substance: OMEPRAZOLE
     Indication: Product used for unknown indication
  22. OMEPRAZOLE [Concomitant]
     Active Substance: OMEPRAZOLE
     Dosage: 2 DOSAGE FORM, QD (1 EVERY 1 DAYS)
  23. PREDNISONE [Concomitant]
     Active Substance: PREDNISONE
     Indication: Product used for unknown indication
  24. SYNTHROID [Concomitant]
     Active Substance: LEVOTHYROXINE SODIUM
     Indication: Product used for unknown indication
     Dosage: 1 DOSAGE FORM, QD (1 EVERY 1 DAYS)
  25. SYNTHROID [Concomitant]
     Active Substance: LEVOTHYROXINE SODIUM
     Dosage: 0.09 MILLIGRAM, QD (1 EVERY 1 DAYS)
  26. SYNTHROID [Concomitant]
     Active Substance: LEVOTHYROXINE SODIUM
     Dosage: 0.11 MILLIGRAM, QD (1 EVERY 1 DAYS)

REACTIONS (23)
  - Abdominal hernia [Recovering/Resolving]
  - Abdominal pain upper [Recovering/Resolving]
  - Chapped lips [Recovering/Resolving]
  - Erythema [Recovering/Resolving]
  - Gait disturbance [Recovering/Resolving]
  - Injection site bruising [Recovering/Resolving]
  - Injection site discomfort [Recovering/Resolving]
  - Oedema peripheral [Recovering/Resolving]
  - Ovarian cyst [Recovering/Resolving]
  - Rash erythematous [Recovering/Resolving]
  - Rash macular [Recovering/Resolving]
  - Urticaria [Recovering/Resolving]
  - Diarrhoea [Recovering/Resolving]
  - Drug hypersensitivity [Recovering/Resolving]
  - Hypersensitivity [Recovering/Resolving]
  - Lip swelling [Recovering/Resolving]
  - Malaise [Recovering/Resolving]
  - Nausea [Recovering/Resolving]
  - Pain [Recovering/Resolving]
  - Paraesthesia [Recovering/Resolving]
  - Pruritus [Recovering/Resolving]
  - Inappropriate schedule of product administration [Recovering/Resolving]
  - Product administered at inappropriate site [Recovering/Resolving]
